FAERS Safety Report 13648925 (Version 1)
Quarter: 2017Q2

REPORT INFORMATION
  Report Type: Report from Study
  Country: CO (occurrence: CO)
  Receive Date: 20170613
  Receipt Date: 20170613
  Transmission Date: 20170830
  Serious: Yes (Life-Threatening, Hospitalization)
  Sender: FDA-Public Use
  Company Number: PHHY2017CO086207

PATIENT
  Sex: Male
  Weight: 63 kg

DRUGS (1)
  1. AFINITOR [Suspect]
     Active Substance: EVEROLIMUS
     Indication: NEUROENDOCRINE TUMOUR
     Dosage: 5 MG, QD
     Route: 048
     Dates: start: 20150710, end: 20170509

REACTIONS (3)
  - Feeling abnormal [Unknown]
  - Decreased immune responsiveness [Unknown]
  - Pneumonia [Unknown]
